FAERS Safety Report 20308880 (Version 2)
Quarter: 2022Q1

REPORT INFORMATION
  Report Type: Spontaneous
  Country: KR (occurrence: KR)
  Receive Date: 20220107
  Receipt Date: 20220114
  Transmission Date: 20220423
  Serious: Yes (Death, Hospitalization, Other)
  Sender: FDA-Public Use
  Company Number: KR-BoehringerIngelheim-2022-BI-146850

PATIENT
  Sex: Female
  Weight: 48 kg

DRUGS (2)
  1. OFEV [Suspect]
     Active Substance: NINTEDANIB
     Indication: Idiopathic pulmonary fibrosis
     Dates: start: 20210825
  2. OFEV [Suspect]
     Active Substance: NINTEDANIB
     Dates: start: 20211001, end: 202112

REACTIONS (1)
  - Idiopathic pulmonary fibrosis [Fatal]
